FAERS Safety Report 5696822-X (Version None)
Quarter: 2008Q2

REPORT INFORMATION
  Report Type: 
  Country: None (occurrence: None)
  Receive Date: 20080408
  Receipt Date: 20061114
  Transmission Date: 20081010
  Serious: No
  Sender: FDA-Public Use
  Company Number: US-BAYER-US-2006-036156

PATIENT
  Age: 39 Year
  Sex: Female
  Weight: 59 kg

DRUGS (3)
  1. YASMIN [Suspect]
     Indication: ABDOMINAL PAIN
     Route: 048
     Dates: start: 20061112
  2. CELEXA [Concomitant]
     Dosage: UNIT DOSE: 5 MG
     Route: 048
  3. NAPROXEN [Concomitant]

REACTIONS (1)
  - HYPOMENORRHOEA [None]
